FAERS Safety Report 16188318 (Version 2)
Quarter: 2019Q2

REPORT INFORMATION
  Report Type: Spontaneous
  Country: BE (occurrence: BE)
  Receive Date: 20190412
  Receipt Date: 20190625
  Transmission Date: 20190711
  Serious: Yes (Other)
  Sender: FDA-Public Use
  Company Number: BE-ROCHE-2301265

PATIENT
  Age: 49 Year

DRUGS (10)
  1. DOCETAXEL. [Concomitant]
     Active Substance: DOCETAXEL
     Indication: OFF LABEL USE
  2. NINTEDANIB [Concomitant]
     Active Substance: NINTEDANIB
     Indication: OFF LABEL USE
  3. AVASTIN [Suspect]
     Active Substance: BEVACIZUMAB
     Indication: NON-SMALL CELL LUNG CANCER
     Route: 042
     Dates: start: 20190327
  4. AVASTIN [Suspect]
     Active Substance: BEVACIZUMAB
     Indication: OFF LABEL USE
     Route: 042
     Dates: start: 20190619
  5. CARBOPLATIN. [Concomitant]
     Active Substance: CARBOPLATIN
     Indication: OFF LABEL USE
  6. TECENTRIQ [Suspect]
     Active Substance: ATEZOLIZUMAB
     Indication: NON-SMALL CELL LUNG CANCER
     Route: 042
     Dates: start: 20190327
  7. CRIZOTINIB [Concomitant]
     Active Substance: CRIZOTINIB
     Indication: OFF LABEL USE
  8. LORLATINIB [Concomitant]
     Active Substance: LORLATINIB
     Indication: OFF LABEL USE
  9. TECENTRIQ [Suspect]
     Active Substance: ATEZOLIZUMAB
     Indication: OFF LABEL USE
     Route: 042
     Dates: start: 20190619
  10. PEMETREXED. [Concomitant]
     Active Substance: PEMETREXED
     Indication: OFF LABEL USE

REACTIONS (3)
  - Deep vein thrombosis [Unknown]
  - Product use in unapproved indication [Unknown]
  - Off label use [Unknown]

NARRATIVE: CASE EVENT DATE: 20190327
